FAERS Safety Report 10456965 (Version 4)
Quarter: 2014Q4

REPORT INFORMATION
  Report Type: Other
  Country: JP (occurrence: JP)
  Receive Date: 20140916
  Receipt Date: 20141029
  Transmission Date: 20150528
  Serious: Yes (Death, Life-Threatening, Other)
  Sender: FDA-Public Use
  Company Number: JP-NAPPMUNDI-GBR-2014-0019704

PATIENT
  Age: 67 Year
  Sex: Male

DRUGS (20)
  1. OXYCODONE HCL INJECTABLE [Interacting]
     Active Substance: OXYCODONE HYDROCHLORIDE
     Dosage: 50 MG, DAILY
     Route: 042
     Dates: start: 20130221, end: 20130223
  2. CALONAL [Concomitant]
     Active Substance: ACETAMINOPHEN
     Indication: CANCER PAIN
     Dosage: 3000 MG, DAILY
     Route: 048
     Dates: start: 20130221, end: 20130303
  3. NORVASC [Concomitant]
     Active Substance: AMLODIPINE BESYLATE
     Indication: HYPERTENSION
     Dosage: 5 MG, DAILY
     Route: 048
     Dates: end: 20130304
  4. ZYLORIC [Concomitant]
     Active Substance: ALLOPURINOL
     Indication: HYPERTENSION
     Dosage: 100 MG, DAILY
     Route: 048
     Dates: end: 20130303
  5. OXYCODONE HCL INJECTABLE [Interacting]
     Active Substance: OXYCODONE HYDROCHLORIDE
     Dosage: 10 MG, DAILY
     Route: 042
     Dates: start: 20130220, end: 20130220
  6. OXYCODONE HCL INJECTABLE [Interacting]
     Active Substance: OXYCODONE HYDROCHLORIDE
     Dosage: 50 MG, DAILY
     Route: 042
     Dates: start: 20130223, end: 20130223
  7. MAGMITT [Concomitant]
     Active Substance: MAGNESIUM OXIDE
     Indication: PROPHYLAXIS
     Dosage: 990 MG, DAILY
     Route: 048
     Dates: end: 20130303
  8. NEXIUM [Concomitant]
     Active Substance: ESOMEPRAZOLE MAGNESIUM
     Indication: PROPHYLAXIS
     Dosage: 20 MG, DAILY
     Route: 048
     Dates: end: 20130222
  9. LYRICA [Interacting]
     Active Substance: PREGABALIN
     Indication: OROPHARYNGEAL CANCER
     Dosage: 75 MG, SINGLE
     Route: 048
     Dates: start: 20130222, end: 20130222
  10. MORPHINE [Concomitant]
     Active Substance: MORPHINE
     Dosage: UNK
     Route: 042
  11. OXYCODONE HCL INJECTABLE [Interacting]
     Active Substance: OXYCODONE HYDROCHLORIDE
     Dosage: 40 MG, DAILY
     Route: 042
     Dates: start: 20130221, end: 20130221
  12. OXYCODONE HCL INJECTABLE [Suspect]
     Active Substance: OXYCODONE HYDROCHLORIDE
     Indication: CANCER PAIN
     Dosage: 40 MG, DAILY
     Route: 042
     Dates: start: 20130223, end: 20130223
  13. OXYCODONE HCL INJECTABLE [Interacting]
     Active Substance: OXYCODONE HYDROCHLORIDE
     Dosage: 20 MG, DAILY
     Route: 042
     Dates: start: 20130220, end: 20130221
  14. OXYCODONE HCL IR POWDER 0.5% [Concomitant]
     Active Substance: OXYCODONE HYDROCHLORIDE
     Dosage: 40 MG, Q6H
     Dates: start: 201302, end: 201302
  15. NOVAMIN                            /00013301/ [Concomitant]
     Active Substance: PROCHLORPERAZINE MALEATE
     Indication: PROPHYLAXIS
     Dosage: 10 MG, DAILY
     Route: 048
     Dates: start: 20130220, end: 20130303
  16. FENTANYL. [Concomitant]
     Active Substance: FENTANYL
     Dosage: UNK
     Route: 042
     Dates: start: 201302
  17. FAROM [Concomitant]
     Active Substance: FAROPENEM SODIUM
     Indication: HYPERTENSION
     Dosage: 100 MG, DAILY
     Route: 048
     Dates: end: 20130225
  18. OXYCODONE HCL INJECTABLE [Interacting]
     Active Substance: OXYCODONE HYDROCHLORIDE
     Dosage: 70 MG, DAILY
     Route: 042
     Dates: start: 20130223, end: 20130223
  19. MUCOSTA [Concomitant]
     Active Substance: REBAMIPIDE
     Indication: PROPHYLAXIS
     Dosage: 300 MG, DAILY
     Route: 048
     Dates: end: 20130303
  20. TENORMIN [Concomitant]
     Active Substance: ATENOLOL
     Indication: HYPERTENSION
     Dosage: 25 MG, DAILY
     Route: 048
     Dates: end: 20130304

REACTIONS (4)
  - Shock haemorrhagic [Fatal]
  - Drug interaction [Recovered/Resolved]
  - Depressed level of consciousness [Recovered/Resolved]
  - Respiratory depression [Recovered/Resolved]

NARRATIVE: CASE EVENT DATE: 20130223
